FAERS Safety Report 9555127 (Version 1)
Quarter: 2013Q3

REPORT INFORMATION
  Report Type: Spontaneous
  Country: US (occurrence: None)
  Receive Date: 20130724
  Receipt Date: 20130724
  Transmission Date: 20140515
  Serious: No
  Sender: FDA-Public Use
  Company Number: PHEH2013US005888

PATIENT
  Age: 53 Year
  Sex: Male

DRUGS (3)
  1. GILENYA [Suspect]
     Indication: MULTIPLE SCLEROSIS
     Route: 048
     Dates: start: 20130301, end: 20130311
  2. BACLOFEN (BACLOFEN) [Concomitant]
  3. VIT D (ERGOCALCIFEROL) [Concomitant]

REACTIONS (6)
  - Altered visual depth perception [None]
  - Muscular weakness [None]
  - Muscle spasms [None]
  - Gait disturbance [None]
  - Visual impairment [None]
  - Vision blurred [None]
